FAERS Safety Report 13721335 (Version 2)
Quarter: 2017Q3

REPORT INFORMATION
  Report Type: Spontaneous
  Country: JP (occurrence: JP)
  Receive Date: 20170706
  Receipt Date: 20170719
  Transmission Date: 20171127
  Serious: Yes (Other)
  Sender: FDA-Public Use
  Company Number: JP-ROCHE-1960013

PATIENT
  Age: 94 Year
  Sex: Female
  Weight: 38 kg

DRUGS (8)
  1. SPIRONOLACTONE. [Concomitant]
     Active Substance: SPIRONOLACTONE
     Route: 065
  2. SIMVASTATIN. [Concomitant]
     Active Substance: SIMVASTATIN
     Dosage: DOSAGE IS UNCERTAIN.
     Route: 065
  3. BONVIVA [Suspect]
     Active Substance: IBANDRONATE SODIUM
     Indication: OSTEOPOROSIS
     Route: 048
     Dates: start: 201611, end: 20170614
  4. MARZULENE-S [Concomitant]
     Active Substance: SODIUM GUALENATE
     Dosage: DOSAGE IS UNCERTAIN.
     Route: 065
  5. AMLODIPINE [Concomitant]
     Active Substance: AMLODIPINE BESYLATE
     Dosage: DOSAGE IS UNCERTAIN.
     Route: 065
  6. FUROSEMIDE. [Concomitant]
     Active Substance: FUROSEMIDE
     Dosage: DOSAGE IS UNCERTAIN.
     Route: 065
  7. WARFARIN [Concomitant]
     Active Substance: WARFARIN
     Dosage: DOSAGE IS UNCERTAIN.
     Route: 065
  8. CANDESARTAN. [Concomitant]
     Active Substance: CANDESARTAN
     Dosage: DOSAGE IS UNCERTAIN.
     Route: 065

REACTIONS (1)
  - Oesophageal stenosis [Recovering/Resolving]

NARRATIVE: CASE EVENT DATE: 20170614
